FAERS Safety Report 11694309 (Version 2)
Quarter: 2015Q4

REPORT INFORMATION
  Report Type: Spontaneous
  Country: US (occurrence: US)
  Receive Date: 20151103
  Receipt Date: 20151217
  Transmission Date: 20160304
  Serious: No
  Sender: FDA-Public Use
  Company Number: US-GLAXOSMITHKLINE-US2015GSK156222

PATIENT
  Sex: Male

DRUGS (17)
  1. TERBINAFINE HYDROCHLORIDE TABLET [Concomitant]
     Active Substance: TERBINAFINE HYDROCHLORIDE
  2. CLOTRIMAZOLE/BETAMETHASONE CREAM [Concomitant]
  3. BUPROPION HYDROCHLORIDE PROLONGED-RELEASE TABLET [Concomitant]
     Active Substance: BUPROPION HYDROCHLORIDE
  4. 2% KETOCONAZOLE CREAM CREAM [Concomitant]
  5. OXYCODONE HYDROCHLORIDE TABLET [Concomitant]
  6. SORIATANE [Suspect]
     Active Substance: ACITRETIN
     Indication: LICHEN PLANUS
  7. ACITRETIN CAPSULE [Concomitant]
     Active Substance: ACITRETIN
  8. CYCLOBENZAPRINE TABLET [Concomitant]
  9. PREDNISONE TABLET [Concomitant]
     Active Substance: PREDNISONE
  10. CEFUROXIME AXETIL TABLET [Concomitant]
  11. LIOTHYRONINE SODIUM TABLET [Concomitant]
  12. PENICILLIN VK TABLET [Concomitant]
  13. MUPIROCIN 2% OINTMENT [Concomitant]
     Active Substance: MUPIROCIN
  14. SORIATANE [Suspect]
     Active Substance: ACITRETIN
     Indication: NAIL DYSTROPHY
     Dosage: UNK, U
     Route: 065
     Dates: start: 201507, end: 201510
  15. CHLORHEXIDINE [Concomitant]
     Active Substance: CHLORHEXIDINE
  16. LORAZEPAM TABLET [Concomitant]
  17. SYNTHROID [Concomitant]
     Active Substance: LEVOTHYROXINE SODIUM

REACTIONS (5)
  - Nail dystrophy [Not Recovered/Not Resolved]
  - Lichen planus [Not Recovered/Not Resolved]
  - Pain [Not Recovered/Not Resolved]
  - Onychomadesis [Unknown]
  - Ill-defined disorder [Not Recovered/Not Resolved]

NARRATIVE: CASE EVENT DATE: 2015
